FAERS Safety Report 16910922 (Version 2)
Quarter: 2020Q1

REPORT INFORMATION
  Report Type: Spontaneous
  Country: US (occurrence: US)
  Receive Date: 20191012
  Receipt Date: 20200102
  Transmission Date: 20200409
  Serious: Yes (Life-Threatening, Other)
  Sender: FDA-Public Use
  Company Number: PHHY2019US227058

PATIENT
  Age: 79 Year
  Sex: Female

DRUGS (1)
  1. METOPROLOL. [Suspect]
     Active Substance: METOPROLOL
     Indication: HYPERTENSION
     Dosage: 100 MG, BID
     Route: 065
     Dates: end: 2016

REACTIONS (1)
  - Pemphigus [Recovered/Resolved]

NARRATIVE: CASE EVENT DATE: 201608
